FAERS Safety Report 17257582 (Version 1)
Quarter: 2020Q1

REPORT INFORMATION
  Report Type: Spontaneous
  Country: US (occurrence: US)
  Receive Date: 20200109
  Receipt Date: 20200109
  Transmission Date: 20200409
  Serious: Yes (Life-Threatening, Hospitalization, Other)
  Sender: FDA-Public Use
  Company Number: None

PATIENT
  Age: 46 Year
  Sex: Female
  Weight: 57.6 kg

DRUGS (3)
  1. NITROFURANTOIN. [Suspect]
     Active Substance: NITROFURANTOIN
  2. ATENOLOL (GENERIC) [Suspect]
     Active Substance: ATENOLOL
     Indication: HYPERTENSION
     Route: 048
     Dates: start: 20040101, end: 20040101
  3. MAXIDE (BRAND) [Concomitant]

REACTIONS (3)
  - Stevens-Johnson syndrome [None]
  - Allergic reaction to excipient [None]
  - Product substitution issue [None]

NARRATIVE: CASE EVENT DATE: 20040101
